FAERS Safety Report 5030175-5 (Version None)
Quarter: 2006Q2

REPORT INFORMATION
  Report Type: 
  Country: None (occurrence: None)
  Receive Date: 20060620
  Receipt Date: 20060609
  Transmission Date: 20061013
  Serious: Yes (Hospitalization)
  Sender: FDA-Public Use
  Company Number: PHEH2006US07626

PATIENT
  Age: 79 Year
  Sex: Male
  Weight: 79.818 kg

DRUGS (6)
  1. GLUCOPHAGE [Concomitant]
  2. LASIX [Concomitant]
  3. POTASSIUM [Concomitant]
  4. NEXIUM [Concomitant]
  5. ACETYLSALICYLIC ACID SRT [Concomitant]
  6. GLEEVEC [Suspect]
     Indication: GASTROINTESTINAL STROMAL TUMOUR
     Dosage: 400 MG, QD
     Route: 048
     Dates: start: 20051013

REACTIONS (3)
  - EYELID PTOSIS [None]
  - MUSCULAR WEAKNESS [None]
  - MYASTHENIC SYNDROME [None]
